FAERS Safety Report 10413904 (Version 5)
Quarter: 2016Q1

REPORT INFORMATION
  Report Type: Spontaneous
  Country: US (occurrence: US)
  Receive Date: 20140827
  Receipt Date: 20160112
  Transmission Date: 20160525
  Serious: Yes (Hospitalization, Other)
  Sender: FDA-Public Use
  Company Number: US-009507513-1408USA011544

PATIENT
  Sex: Female

DRUGS (8)
  1. OXYBUTYNIN [Concomitant]
     Active Substance: OXYBUTYNIN
     Indication: URINARY INCONTINENCE
     Dosage: UNK, UNKNOWN
     Route: 065
     Dates: start: 2002
  2. ACTONEL [Suspect]
     Active Substance: RISEDRONATE SODIUM
     Indication: OSTEOPOROSIS
     Dosage: 35 MG, QW
     Route: 048
     Dates: start: 200804, end: 200904
  3. ALENDRONATE SODIUM. [Suspect]
     Active Substance: ALENDRONATE SODIUM
     Indication: OSTEOPOROSIS
     Dosage: 70 MG, QW
     Route: 048
     Dates: start: 200803, end: 201210
  4. EVISTA [Suspect]
     Active Substance: RALOXIFENE HYDROCHLORIDE
     Indication: OSTEOPOROSIS
     Dosage: 60 MG, QD
     Route: 048
     Dates: start: 200802, end: 200804
  5. BONIVA [Suspect]
     Active Substance: IBANDRONATE SODIUM
     Indication: OSTEOPOROSIS
     Dosage: 150 MG, QM
     Route: 048
     Dates: start: 200804, end: 200805
  6. FOSAMAX [Suspect]
     Active Substance: ALENDRONATE SODIUM
     Indication: OSTEOPOROSIS
     Dosage: 70 MG, QW
     Route: 048
     Dates: start: 200603, end: 201105
  7. IRON POTASSIUM (UNSPECIFIED) [Concomitant]
     Indication: ROUTINE HEALTH MAINTENANCE
     Dosage: 2 MG, 2DAYS/WEEK
     Route: 048
     Dates: start: 1970
  8. RANITIDINE [Concomitant]
     Active Substance: RANITIDINE\RANITIDINE HYDROCHLORIDE
     Indication: GASTROOESOPHAGEAL REFLUX DISEASE
     Dosage: UNK, UNKNOWN
     Route: 065
     Dates: start: 2006

REACTIONS (32)
  - Limb operation [Unknown]
  - Depression [Not Recovered/Not Resolved]
  - Loss of consciousness [Unknown]
  - Radius fracture [Unknown]
  - Femoral neck fracture [Unknown]
  - Gastritis [Unknown]
  - Urinary tract infection [Unknown]
  - Eructation [Unknown]
  - Hypertension [Unknown]
  - Fall [Unknown]
  - Ulna fracture [Unknown]
  - Loss of consciousness [Unknown]
  - Fall [Unknown]
  - Sexual dysfunction [Not Recovered/Not Resolved]
  - Wrist fracture [Unknown]
  - Haemorrhagic anaemia [Unknown]
  - Knee arthroplasty [Unknown]
  - Orthopaedic procedure [Unknown]
  - Hypertension [Unknown]
  - Pain [Unknown]
  - Fall [Unknown]
  - Cholecystectomy [Unknown]
  - Sleep apnoea syndrome [Unknown]
  - Femur fracture [Unknown]
  - Restless legs syndrome [Unknown]
  - Drug intolerance [Unknown]
  - Insomnia [Unknown]
  - Lactose intolerance [Unknown]
  - Abdominal operation [Unknown]
  - Anxiety [Not Recovered/Not Resolved]
  - Fluid retention [Not Recovered/Not Resolved]
  - Gingival recession [Unknown]

NARRATIVE: CASE EVENT DATE: 2006
